FAERS Safety Report 8298762-9 (Version None)
Quarter: 2012Q2

REPORT INFORMATION
  Report Type: 
  Country: None (occurrence: None)
  Receive Date: 20120419
  Receipt Date: 20120411
  Transmission Date: 20120825
  Serious: Yes (Other)
  Sender: FDA-Public Use
  Company Number: IT-ASTRAZENECA-2012SE23834

PATIENT
  Age: 17030 Day
  Sex: Male

DRUGS (1)
  1. LIDOCAINE HYDROCHLORIDE [Suspect]
     Indication: LOCAL ANAESTHESIA
     Route: 058
     Dates: start: 20120330, end: 20120330

REACTIONS (2)
  - ANAPHYLACTIC REACTION [None]
  - SYNCOPE [None]
